FAERS Safety Report 15164196 (Version 3)
Quarter: 2019Q2

REPORT INFORMATION
  Report Type: Spontaneous
  Country: US (occurrence: US)
  Receive Date: 20180719
  Receipt Date: 20190605
  Transmission Date: 20190711
  Serious: Yes (Other)
  Sender: FDA-Public Use
  Company Number: US-ASTRAZENECA-2018SE91026

PATIENT
  Sex: Female
  Weight: 78.9 kg

DRUGS (21)
  1. LOSARTAN. [Concomitant]
     Active Substance: LOSARTAN
  2. ATORVASTATIN [Concomitant]
     Active Substance: ATORVASTATIN
  3. NEXIUM [Suspect]
     Active Substance: ESOMEPRAZOLE MAGNESIUM
     Route: 048
     Dates: start: 2013, end: 2015
  4. PREDNISONE. [Concomitant]
     Active Substance: PREDNISONE
     Dates: start: 2015, end: 2016
  5. AMITRIPTYLINE [Concomitant]
     Active Substance: AMITRIPTYLINE
  6. TIZANIDINE. [Concomitant]
     Active Substance: TIZANIDINE
  7. LEVALBUTEROL. [Concomitant]
     Active Substance: LEVALBUTEROL
  8. AMLODIPINE [Concomitant]
     Active Substance: AMLODIPINE BESYLATE
  9. CLARITHROMYCIN. [Concomitant]
     Active Substance: CLARITHROMYCIN
  10. METOPROLOL. [Concomitant]
     Active Substance: METOPROLOL
  11. NEXIUM [Suspect]
     Active Substance: ESOMEPRAZOLE MAGNESIUM
     Route: 048
     Dates: start: 2010, end: 2014
  12. LEVOTHYROXINE. [Concomitant]
     Active Substance: LEVOTHYROXINE
  13. PREDNISONE. [Concomitant]
     Active Substance: PREDNISONE
  14. LISINOPRIL. [Concomitant]
     Active Substance: LISINOPRIL
  15. GLIPIZIDE. [Concomitant]
     Active Substance: GLIPIZIDE
  16. GABAPENTIN. [Concomitant]
     Active Substance: GABAPENTIN
  17. ALPRAZOLAM. [Concomitant]
     Active Substance: ALPRAZOLAM
  18. IBUPROFEN. [Concomitant]
     Active Substance: IBUPROFEN
  19. HYDROMORPHONE HYDROCHLORIDE. [Concomitant]
     Active Substance: HYDROMORPHONE HYDROCHLORIDE
  20. TRADJENTA [Concomitant]
     Active Substance: LINAGLIPTIN
  21. CLOPIDOGREL [Concomitant]
     Active Substance: CLOPIDOGREL BISULFATE

REACTIONS (3)
  - Renal failure [Unknown]
  - Acute kidney injury [Unknown]
  - Chronic kidney disease [Not Recovered/Not Resolved]
